FAERS Safety Report 6986666-0 (Version None)
Quarter: 2010Q3

REPORT INFORMATION
  Report Type: 
  Country: None (occurrence: None)
  Receive Date: 20100915
  Receipt Date: 20090724
  Transmission Date: 20110219
  Serious: No
  Sender: FDA-Public Use
  Company Number: US-WYE-H10330509

PATIENT
  Sex: Female
  Weight: 68.1 kg

DRUGS (7)
  1. PRISTIQ [Suspect]
     Indication: DEPRESSION
     Route: 048
     Dates: start: 20090401
  2. METOPROLOL TARTRATE [Concomitant]
  3. OPANA ER [Concomitant]
  4. AMBIEN [Concomitant]
  5. DIAZEPAM [Concomitant]
  6. HYDROCHLOROTHIAZIDE [Concomitant]
  7. METHOCARBAMOL [Concomitant]

REACTIONS (5)
  - ANXIETY [None]
  - DRY MOUTH [None]
  - HYPERHIDROSIS [None]
  - IRRITABILITY [None]
  - LOSS OF LIBIDO [None]
